FAERS Safety Report 21528689 (Version 1)
Quarter: 2022Q4

REPORT INFORMATION
  Report Type: Spontaneous
  Country: GB (occurrence: GB)
  Receive Date: 20221031
  Receipt Date: 20221031
  Transmission Date: 20230112
  Serious: Yes (Other)
  Sender: FDA-Public Use
  Company Number: GB-MHRA-MED-202210210818365830-GFBJM

PATIENT
  Sex: Female
  Weight: 70 kg

DRUGS (1)
  1. FAMOTIDINE [Suspect]
     Active Substance: FAMOTIDINE
     Indication: Hiatus hernia
     Dosage: 20 MILLIGRAM, HS (20MG AT NIGHT)
     Route: 065

REACTIONS (1)
  - Dry eye [Not Recovered/Not Resolved]
